FAERS Safety Report 8488832-4 (Version None)
Quarter: 2012Q2

REPORT INFORMATION
  Report Type: 
  Country: None (occurrence: None)
  Receive Date: 20120626
  Receipt Date: 20120614
  Transmission Date: 20120825
  Serious: Yes (Hospitalization, Other)
  Sender: FDA-Public Use
  Company Number: WAES 1205USA02688

PATIENT
  Age: 77 Year
  Sex: Male

DRUGS (21)
  1. BUMETANIDE [Concomitant]
  2. PANTOPRAZOLE [Concomitant]
  3. DILTIAZEM HCL [Concomitant]
  4. PHENOXYMETHYL PENICILLIN [Concomitant]
  5. OXYCONTIN [Concomitant]
  6. TRANSIPEG [Concomitant]
  7. VALACYCLOVIR HYDROCHLORIDE [Concomitant]
  8. SULFADIMETHOXINE/TRIMETHOPRIM [Concomitant]
  9. DECADRON PHOSPHATE [Suspect]
     Indication: MULTIPLE MYELOMA
     Route: 042
     Dates: start: 20111213
  10. MICONAZOLE [Concomitant]
  11. LENALIDOMIDE [Suspect]
     Indication: MULTIPLE MYELOMA
     Dosage: 25 MG/DAILY
     Route: 048
     Dates: start: 20111213, end: 20120130
  12. DECADRON [Suspect]
     Indication: MULTIPLE MYELOMA
     Dosage: 28 MG/DAILY
     Route: 048
     Dates: start: 20111231, end: 20120130
  13. IMOVANE [Concomitant]
  14. ALBUTEROL [Concomitant]
  15. INJ ELOTUZUMAB [Suspect]
     Indication: MULTIPLE MYELOMA
     Dosage: 760 MG
     Route: 042
     Dates: start: 20111213, end: 20120131
  16. LYRICA [Concomitant]
  17. POTASSIUM CHLORIDE [Concomitant]
  18. LEUCOVORIN CALCIUM [Concomitant]
  19. OXYCODONE HCL [Concomitant]
  20. PREVISCAN [Concomitant]
  21. ECONAZOLE [Concomitant]

REACTIONS (3)
  - CARDIAC FAILURE [None]
  - OVERDOSE [None]
  - CHRONIC LYMPHOCYTIC LEUKAEMIA [None]
